FAERS Safety Report 9974710 (Version 1)
Quarter: 2014Q1

REPORT INFORMATION
  Report Type: Spontaneous
  Country: US (occurrence: US)
  Receive Date: 20140306
  Receipt Date: 20140306
  Transmission Date: 20141002
  Serious: No
  Sender: FDA-Public Use
  Company Number: US-ABBVIE-13P-163-1159102-00

PATIENT
  Age: 26 Year
  Sex: Male

DRUGS (1)
  1. HUMIRA [Suspect]
     Indication: PSORIASIS

REACTIONS (3)
  - Drug dose omission [Not Recovered/Not Resolved]
  - Rash macular [Not Recovered/Not Resolved]
  - Pain in extremity [Not Recovered/Not Resolved]
